FAERS Safety Report 7884570-7 (Version None)
Quarter: 2011Q4

REPORT INFORMATION
  Report Type: 
  Country: None (occurrence: None)
  Receive Date: 20111102
  Receipt Date: 20111019
  Transmission Date: 20120403
  Serious: Yes (Other)
  Sender: FDA-Public Use
  Company Number: BR-US-EMD SERONO, INC.-7090923

PATIENT
  Sex: Female

DRUGS (3)
  1. REBIF [Suspect]
     Indication: RELAPSING-REMITTING MULTIPLE SCLEROSIS
     Dates: start: 20080818
  2. ACETAMINOPHEN [Concomitant]
  3. LOSARTAN POTASSIUM [Concomitant]

REACTIONS (2)
  - DIABETES MELLITUS [None]
  - INJECTION SITE ERYTHEMA [None]
